FAERS Safety Report 7028851-8 (Version None)
Quarter: 2010Q3

REPORT INFORMATION
  Report Type: 
  Country: None (occurrence: None)
  Receive Date: 20100831
  Receipt Date: 20100816
  Transmission Date: 20110219
  Serious: Yes (Other)
  Sender: FDA-Public Use
  Company Number: OMX-2010-00063

PATIENT
  Age: 69 Year
  Sex: Male
  Weight: 77.5651 kg

DRUGS (6)
  1. EVICEL [Suspect]
     Indication: HAEMOSTASIS
  2. EVICEL [Suspect]
     Indication: TISSUE SEALING
  3. APPLICATOR [Suspect]
     Indication: FACE LIFT
  4. PRESSURE REGULATOR (SPRAY (NOT INHALATION)) [Suspect]
     Dosage: AMOUNT OF PRESSURE USED WAS 80 PSI
  5. KEFLEX (CEFALEXIN) - (250 MG) [Concomitant]
  6. ANESTHESIA (ANESTHETICS NOS) [Concomitant]

REACTIONS (3)
  - DISCOMFORT [None]
  - PAIN [None]
  - POST PROCEDURAL HAEMATOMA [None]
